FAERS Safety Report 5416653-5 (Version None)
Quarter: 2007Q3

REPORT INFORMATION
  Report Type: 
  Country: None (occurrence: None)
  Receive Date: 20070814
  Receipt Date: 20070803
  Transmission Date: 20080115
  Serious: Yes (Other)
  Sender: FDA-Public Use
  Company Number: CHNY2007GB02736

PATIENT
  Sex: Female
  Weight: 23 kg

DRUGS (3)
  1. HYOSCINE HBR HYT [Suspect]
     Indication: JAW DISORDER
     Dosage: 1 DF, Q72H, TRANSDERMAL
     Route: 062
  2. STIRIPENTOL                   (STIRIPENTOL) [Suspect]
     Indication: EPILEPSY
     Dosage: BID, ORAL
     Route: 048
     Dates: start: 20070601
  3. VALPROATE SODIUM [Concomitant]

REACTIONS (1)
  - TRISMUS [None]
